FAERS Safety Report 24237574 (Version 3)
Quarter: 2024Q3

REPORT INFORMATION
  Report Type: Spontaneous
  Country: US (occurrence: US)
  Receive Date: 20240822
  Receipt Date: 20240927
  Transmission Date: 20241017
  Serious: No
  Sender: PFIZER
  Company Number: US-PFIZER INC-202400037332

PATIENT
  Age: 1 Year
  Sex: Female

DRUGS (2)
  1. GENOTROPIN [Suspect]
     Active Substance: SOMATROPIN
     Indication: Blood growth hormone
     Dosage: 0.4 MG, 4 DAYS A WEEK
     Dates: start: 202402
  2. GENOTROPIN [Suspect]
     Active Substance: SOMATROPIN
     Dosage: 0.4 MG, 5 DAYS A WEEK, MONDAY THROUGH FRIDAY

REACTIONS (1)
  - Device information output issue [Unknown]
